FAERS Safety Report 15633716 (Version 2)
Quarter: 2019Q2

REPORT INFORMATION
  Report Type: Spontaneous
  Country: US (occurrence: US)
  Receive Date: 20181119
  Receipt Date: 20190606
  Transmission Date: 20190711
  Serious: Yes (Other)
  Sender: FDA-Public Use
  Company Number: US-SA-2018SA316023

PATIENT
  Age: 50 Year
  Sex: Female
  Weight: 66 kg

DRUGS (5)
  1. NEOSAR [Concomitant]
     Active Substance: CYCLOPHOSPHAMIDE
     Dosage: UNK
  2. 5-FLUOROURACIL [FLUOROURACIL] [Concomitant]
     Active Substance: FLUOROURACIL
     Dosage: UNK
  3. TAXOTERE [Suspect]
     Active Substance: DOCETAXEL
     Indication: BREAST CANCER FEMALE
     Dosage: 30 MG, QW
     Route: 042
     Dates: start: 20010627, end: 20010627
  4. TREXALL [Concomitant]
     Active Substance: METHOTREXATE SODIUM
     Dosage: UNK
  5. TAXOTERE [Suspect]
     Active Substance: DOCETAXEL
     Dosage: UNK UNK, QW
     Route: 042
     Dates: start: 20010913, end: 20010913

REACTIONS (1)
  - Alopecia [Not Recovered/Not Resolved]

NARRATIVE: CASE EVENT DATE: 20011025
